FAERS Safety Report 7995875-3 (Version None)
Quarter: 2011Q4

REPORT INFORMATION
  Report Type: 
  Country: None (occurrence: None)
  Receive Date: 20111220
  Receipt Date: 20111209
  Transmission Date: 20120403
  Serious: Yes (Hospitalization)
  Sender: FDA-Public Use
  Company Number: CA-BAXTER-2011BH033068

PATIENT
  Age: 70 Year
  Sex: Male
  Weight: 94 kg

DRUGS (4)
  1. GAMMAGARD LIQUID [Suspect]
     Route: 042
     Dates: start: 20110806, end: 20110806
  2. GAMMAGARD LIQUID [Suspect]
     Route: 042
     Dates: start: 20080503, end: 20080503
  3. GAMMAGARD LIQUID [Suspect]
     Indication: SECONDARY IMMUNODEFICIENCY
     Route: 042
     Dates: start: 20110902, end: 20110902
  4. GAMMAGARD LIQUID [Suspect]
     Route: 042
     Dates: start: 20110706, end: 20110706

REACTIONS (13)
  - TACHYCARDIA [None]
  - ANXIETY [None]
  - OXYGEN SATURATION DECREASED [None]
  - OEDEMA PERIPHERAL [None]
  - TREMOR [None]
  - CHRONIC OBSTRUCTIVE PULMONARY DISEASE [None]
  - CHILLS [None]
  - DYSPNOEA [None]
  - CELLULITIS [None]
  - ERYTHEMA [None]
  - HYPERVENTILATION [None]
  - BODY TEMPERATURE DECREASED [None]
  - HYPERTENSION [None]
